FAERS Safety Report 7502820-3 (Version None)
Quarter: 2011Q2

REPORT INFORMATION
  Report Type: 
  Country: None (occurrence: None)
  Receive Date: 20110524
  Receipt Date: 20110524
  Transmission Date: 20111010
  Serious: No
  Sender: FDA-Public Use
  Company Number: None

PATIENT
  Sex: Female

DRUGS (1)
  1. ENBREL [Suspect]
     Dosage: 50MG WEEKLY SUBCU
     Route: 058
     Dates: start: 20110216, end: 20110519

REACTIONS (1)
  - RASH GENERALISED [None]
